FAERS Safety Report 8240377-2 (Version None)
Quarter: 2012Q1

REPORT INFORMATION
  Report Type: 
  Country: None (occurrence: None)
  Receive Date: 20120328
  Receipt Date: 20120323
  Transmission Date: 20120608
  Serious: Yes (Other)
  Sender: FDA-Public Use
  Company Number: US-PFIZER INC-2012076170

PATIENT
  Age: 74 Year
  Sex: Female
  Weight: 83.9 kg

DRUGS (9)
  1. REVATIO [Suspect]
     Indication: DYSPNOEA
     Dosage: 20 MG, 3X/DAY
     Route: 048
     Dates: start: 20120201
  2. MELOXICAM [Concomitant]
     Indication: ARTHRITIS
     Dosage: 15 MG, 1X/DAY
  3. LEVOTHYROXINE [Concomitant]
     Indication: HYPOTHYROIDISM
     Dosage: 50 MG, 1X/DAY
  4. ATENOLOL [Concomitant]
     Indication: CARDIAC DISORDER
     Dosage: 50 MG, 2X/DAY
  5. REVATIO [Suspect]
     Indication: ANGIOPATHY
     Dosage: 40 MG, 3X/DAY
     Route: 048
     Dates: start: 20120301
  6. WARFARIN [Concomitant]
     Indication: ANTICOAGULANT THERAPY
     Dosage: 4 MG, DAILY
  7. POTASSIUM CHLORIDE [Concomitant]
     Dosage: 10 MG, 1X/DAY
  8. FUROSEMIDE [Concomitant]
     Indication: FLUID RETENTION
     Dosage: 40 MG, 1X/DAY
  9. URSODIOL [Concomitant]
     Indication: GALLBLADDER DISORDER
     Dosage: 300 MG, 3X/DAY

REACTIONS (2)
  - EYE HAEMORRHAGE [None]
  - ARTHRITIS [None]
